FAERS Safety Report 15850198 (Version 1)
Quarter: 2019Q1

REPORT INFORMATION
  Report Type: Spontaneous
  Country: US (occurrence: US)
  Receive Date: 20190121
  Receipt Date: 20190121
  Transmission Date: 20190417
  Serious: No
  Sender: FDA-Public Use
  Company Number: US-TEVA-2018-US-991228

PATIENT
  Sex: Male

DRUGS (1)
  1. TESTOSTERONE GEL 1% [Suspect]
     Active Substance: TESTOSTERONE
     Route: 065

REACTIONS (3)
  - Malabsorption from administration site [Unknown]
  - General physical condition abnormal [Unknown]
  - Blood test abnormal [Unknown]
